FAERS Safety Report 6109475-3 (Version None)
Quarter: 2009Q1

REPORT INFORMATION
  Report Type: 
  Country: None (occurrence: None)
  Receive Date: 20090310
  Receipt Date: 20090304
  Transmission Date: 20090719
  Serious: Yes (Hospitalization)
  Sender: FDA-Public Use
  Company Number: JP-BAYER-200812662BYL

PATIENT
  Age: 77 Year
  Sex: Female

DRUGS (7)
  1. ASPIRIN [Suspect]
     Indication: THROMBOSIS PROPHYLAXIS
     Dosage: TOTAL DAILY DOSE: 100 MG  UNIT DOSE: 100 MG
     Route: 048
     Dates: start: 20081014, end: 20081024
  2. STEROID [Concomitant]
     Indication: INTERSTITIAL LUNG DISEASE
     Route: 065
     Dates: start: 20081007
  3. STEROID [Concomitant]
     Route: 065
     Dates: start: 20081107
  4. TAKEPRON [Concomitant]
     Indication: GASTRIC ULCER
     Dosage: TOTAL DAILY DOSE: 30 MG  UNIT DOSE: 30 MG
     Route: 048
     Dates: start: 20081006, end: 20081027
  5. CLARITH [Concomitant]
     Indication: PNEUMONIA
     Dosage: TOTAL DAILY DOSE: 400 MG  UNIT DOSE: 200 MG
     Route: 048
     Dates: start: 20081006, end: 20081109
  6. ONEALFA [Concomitant]
     Indication: OSTEOPOROSIS
     Dosage: TOTAL DAILY DOSE: 0.5 ?G  UNIT DOSE: 0.5 ?G
     Route: 048
     Dates: start: 20081014, end: 20081028
  7. DIOVAN [Concomitant]
     Indication: HYPERTENSION
     Dosage: TOTAL DAILY DOSE: 40 MG  UNIT DOSE: 40 MG
     Route: 048
     Dates: start: 20040119, end: 20081101

REACTIONS (1)
  - THROMBOCYTOPENIA [None]
